FAERS Safety Report 10439831 (Version 1)
Quarter: 2014Q3

REPORT INFORMATION
  Report Type: Spontaneous
  Country: US (occurrence: US)
  Receive Date: 20140908
  Receipt Date: 20140908
  Transmission Date: 20150326
  Serious: No
  Sender: FDA-Public Use
  Company Number: US-BRISTOL-MYERS SQUIBB COMPANY-20035721

PATIENT
  Age: 28 Year
  Sex: Female

DRUGS (5)
  1. LITHIUM [Concomitant]
     Active Substance: LITHIUM CARBONATE
  2. ZYPREXA [Concomitant]
     Active Substance: OLANZAPINE
  3. ATIVAN [Concomitant]
     Active Substance: LORAZEPAM
  4. ABILIFY MAINTENA [Suspect]
     Active Substance: ARIPIPRAZOLE
     Indication: SCHIZOAFFECTIVE DISORDER
     Dosage: LAST DOSE ON 31DEC13
     Route: 030
     Dates: start: 20131204
  5. ABILIFY [Suspect]
     Active Substance: ARIPIPRAZOLE
     Route: 048

REACTIONS (3)
  - Agitation [Not Recovered/Not Resolved]
  - Abnormal behaviour [Not Recovered/Not Resolved]
  - Off label use [Unknown]
